FAERS Safety Report 6788921-6 (Version None)
Quarter: 2010Q2

REPORT INFORMATION
  Report Type: 
  Country: None (occurrence: None)
  Receive Date: 20100623
  Receipt Date: 20080604
  Transmission Date: 20101027
  Serious: Yes (Other)
  Sender: FDA-Public Use
  Company Number: US-PFIZER INC-2008047117

PATIENT
  Sex: Female

DRUGS (2)
  1. DEPO-PROVERA SUSPENSION/INJ [Suspect]
     Dosage: 1ST INJECTION
     Dates: start: 19960223, end: 19960223
  2. DEPO-PROVERA SUSPENSION/INJ [Suspect]
     Dosage: LAST INJECTION
     Dates: start: 20070801, end: 20070801

REACTIONS (3)
  - BREAST CANCER [None]
  - OSTEOPOROSIS [None]
  - VITAMIN D DEFICIENCY [None]
